FAERS Safety Report 9716720 (Version 2)
Quarter: 2014Q3

REPORT INFORMATION
  Report Type: Spontaneous
  Country: RU (occurrence: None)
  Receive Date: 20131125
  Receipt Date: 20140801
  Transmission Date: 20150326
  Serious: Yes (Other)
  Sender: FDA-Public Use
  Company Number: 7250768

PATIENT
  Age: 22 Year
  Sex: Female

DRUGS (1)
  1. EUTHYROX [Suspect]
     Active Substance: LEVOTHYROXINE SODIUM
     Indication: PRODUCT USED FOR UNKNOWN INDICATION
     Dosage: 100 MCG

REACTIONS (3)
  - Maternal exposure during pregnancy [None]
  - Product counterfeit [None]
  - No therapeutic response [None]

NARRATIVE: CASE EVENT DATE: 201308
